FAERS Safety Report 10687359 (Version 11)
Quarter: 2016Q3

REPORT INFORMATION
  Report Type: Report from Study
  Country: CA (occurrence: CA)
  Receive Date: 20150102
  Receipt Date: 20160922
  Transmission Date: 20161109
  Serious: Yes (Other)
  Sender: FDA-Public Use
  Company Number: PHHY2013CA130024

PATIENT
  Age: 55 Year
  Sex: Female

DRUGS (15)
  1. TYLENOL WITH CODEINE [Concomitant]
     Active Substance: ACETAMINOPHEN\CODEINE PHOSPHATE
     Indication: PRODUCT USED FOR UNKNOWN INDICATION
     Route: 065
  2. SANDOSTATIN LAR DEPOT [Suspect]
     Active Substance: OCTREOTIDE ACETATE
     Dosage: 30 MG, QMO
     Route: 030
  3. LIPITOR [Concomitant]
     Active Substance: ATORVASTATIN CALCIUM
     Indication: PRODUCT USED FOR UNKNOWN INDICATION
     Route: 065
  4. SANDOSTATIN LAR DEPOT [Suspect]
     Active Substance: OCTREOTIDE ACETATE
     Dosage: 30 MG, BIW
     Route: 030
  5. SANDOSTATIN LAR DEPOT [Suspect]
     Active Substance: OCTREOTIDE ACETATE
     Dosage: 20 MG, QMO
     Route: 030
  6. ELTROXIN [Concomitant]
     Active Substance: LEVOTHYROXINE
     Indication: PRODUCT USED FOR UNKNOWN INDICATION
     Route: 065
  7. RAMIPRIL. [Concomitant]
     Active Substance: RAMIPRIL
     Indication: PRODUCT USED FOR UNKNOWN INDICATION
     Route: 065
  8. SOMAVERT [Concomitant]
     Active Substance: PEGVISOMANT
     Indication: PRODUCT USED FOR UNKNOWN INDICATION
     Route: 065
  9. NITROFURANTOIN. [Concomitant]
     Active Substance: NITROFURANTOIN
     Indication: PRODUCT USED FOR UNKNOWN INDICATION
     Route: 065
  10. TEMAZEPAM. [Concomitant]
     Active Substance: TEMAZEPAM
     Indication: PRODUCT USED FOR UNKNOWN INDICATION
     Route: 065
  11. SANDOSTATIN LAR DEPOT [Suspect]
     Active Substance: OCTREOTIDE ACETATE
     Indication: ACROMEGALY
     Dosage: 30 MG, BIW
     Route: 030
     Dates: start: 20050609
  12. PREDNISONE. [Concomitant]
     Active Substance: PREDNISONE
     Indication: PRODUCT USED FOR UNKNOWN INDICATION
     Route: 065
  13. LORAZEPAM. [Concomitant]
     Active Substance: LORAZEPAM
     Indication: PRODUCT USED FOR UNKNOWN INDICATION
     Route: 065
  14. ATENOLOL. [Concomitant]
     Active Substance: ATENOLOL
     Indication: PRODUCT USED FOR UNKNOWN INDICATION
     Route: 065
  15. INDAPAMIDE. [Concomitant]
     Active Substance: INDAPAMIDE
     Indication: PRODUCT USED FOR UNKNOWN INDICATION
     Route: 065

REACTIONS (52)
  - Arthralgia [Recovering/Resolving]
  - Frustration tolerance decreased [Unknown]
  - Peripheral coldness [Unknown]
  - Malaise [Unknown]
  - Underdose [Unknown]
  - Bone pain [Unknown]
  - Change of bowel habit [Unknown]
  - Thyroid disorder [Unknown]
  - Exostosis [Unknown]
  - Back pain [Unknown]
  - Dizziness [Recovered/Resolved]
  - Headache [Recovered/Resolved]
  - Proctalgia [Unknown]
  - Urinary tract infection [Unknown]
  - Limb discomfort [Unknown]
  - Musculoskeletal pain [Unknown]
  - Urinary incontinence [Unknown]
  - Furuncle [Unknown]
  - Pain in extremity [Unknown]
  - Dehydration [Unknown]
  - Rectal polyp [Unknown]
  - Polyp [Unknown]
  - Musculoskeletal discomfort [Unknown]
  - Joint swelling [Unknown]
  - Full blood count decreased [Unknown]
  - Heart rate decreased [Unknown]
  - Decreased appetite [Unknown]
  - Needle issue [Unknown]
  - Arthritis [Unknown]
  - Peripheral swelling [Unknown]
  - Contusion [Unknown]
  - Bladder disorder [Unknown]
  - Blood pressure systolic increased [Unknown]
  - Abdominal discomfort [Unknown]
  - Duodenal ulcer [Unknown]
  - Pain [Recovered/Resolved]
  - Haemorrhage [Unknown]
  - Weight decreased [Unknown]
  - Injection site discomfort [Unknown]
  - Abdominal pain upper [Unknown]
  - Helicobacter infection [Unknown]
  - Postoperative wound infection [Recovered/Resolved]
  - Intestinal haemorrhage [Unknown]
  - Diabetes mellitus [Unknown]
  - Dysuria [Unknown]
  - Hyperhidrosis [Unknown]
  - Bone disorder [Unknown]
  - Haemoglobin decreased [Unknown]
  - Blood glucose decreased [Unknown]
  - Gait disturbance [Unknown]
  - Jaundice [Not Recovered/Not Resolved]
  - Product use issue [Unknown]

NARRATIVE: CASE EVENT DATE: 20050609
